FAERS Safety Report 25392805 (Version 3)
Quarter: 2025Q3

REPORT INFORMATION
  Report Type: Spontaneous
  Country: EU (occurrence: EU)
  Receive Date: 20250603
  Receipt Date: 20250707
  Transmission Date: 20251021
  Serious: Yes (Hospitalization, Other)
  Sender: BAUSCH AND LOMB
  Company Number: EU-BAUSCHBL-2025BNL009340

PATIENT
  Age: 70 Year
  Sex: Male

DRUGS (3)
  1. OFLOXACIN [Suspect]
     Active Substance: OFLOXACIN
     Indication: Conjunctivitis
     Route: 065
     Dates: start: 20250517, end: 20250526
  2. OFLOXACIN [Suspect]
     Active Substance: OFLOXACIN
     Indication: Lacrimation increased
  3. OFLOXACIN [Suspect]
     Active Substance: OFLOXACIN
     Indication: Purulent discharge

REACTIONS (8)
  - Cardiac failure [Unknown]
  - Ocular discomfort [Unknown]
  - Lacrimation increased [Unknown]
  - Eye pain [Unknown]
  - Dacryostenosis acquired [Unknown]
  - Eye inflammation [Unknown]
  - Herpes zoster [Unknown]
  - Drug ineffective [Unknown]

NARRATIVE: CASE EVENT DATE: 20250501
